FAERS Safety Report 10467870 (Version 3)
Quarter: 2014Q4

REPORT INFORMATION
  Report Type: Report from Study
  Country: BR (occurrence: BR)
  Receive Date: 20140922
  Receipt Date: 20141011
  Transmission Date: 20150528
  Serious: Yes (Other)
  Sender: FDA-Public Use
  Company Number: PHHY2014BR119362

PATIENT
  Age: 63 Year
  Sex: Female
  Weight: 58 kg

DRUGS (2)
  1. OMEGA 3 [Concomitant]
     Active Substance: OMEGA-3 FATTY ACIDS
     Dosage: 3 DF, DAILY
     Dates: start: 2012
  2. ACLASTA [Suspect]
     Active Substance: ZOLEDRONIC ACID
     Indication: OSTEOPOROSIS
     Dosage: UNK, ONCE A YEAR
     Route: 042
     Dates: start: 2013

REACTIONS (11)
  - Cerebrovascular accident [Unknown]
  - Memory impairment [Unknown]
  - Psychiatric symptom [Unknown]
  - Dementia Alzheimer^s type [Unknown]
  - Crying [Unknown]
  - Bone density decreased [Not Recovered/Not Resolved]
  - Drug ineffective [Not Recovered/Not Resolved]
  - Irritability [Unknown]
  - Amnesia [Unknown]
  - Disorientation [Unknown]
  - Depression [Unknown]

NARRATIVE: CASE EVENT DATE: 20140802
